FAERS Safety Report 22150216 (Version 1)
Quarter: 2023Q1

REPORT INFORMATION
  Report Type: Report from Study
  Country: US (occurrence: US)
  Receive Date: 20230329
  Receipt Date: 20230329
  Transmission Date: 20230417
  Serious: Yes (Other)
  Sender: FDA-Public Use
  Company Number: US-ABBVIE-4707864

PATIENT
  Age: 65 Year
  Sex: Female

DRUGS (1)
  1. RINVOQ [Suspect]
     Active Substance: UPADACITINIB
     Indication: Product used for unknown indication
     Route: 048
     Dates: end: 2022

REACTIONS (5)
  - Hip surgery [Unknown]
  - Peripheral swelling [Unknown]
  - Joint noise [Unknown]
  - Pain [Unknown]
  - Hypophagia [Unknown]

NARRATIVE: CASE EVENT DATE: 20220301
